FAERS Safety Report 16848269 (Version 2)
Quarter: 2024Q3

REPORT INFORMATION
  Report Type: Spontaneous
  Country: US (occurrence: US)
  Receive Date: 20190925
  Receipt Date: 20240911
  Transmission Date: 20241017
  Serious: No
  Sender: AUROBINDO
  Company Number: US-AUROBINDO-AUR-APL-2019-020979

PATIENT
  Age: 7 Year
  Sex: Male

DRUGS (1)
  1. MONTELUKAST SODIUM [Suspect]
     Active Substance: MONTELUKAST\MONTELUKAST SODIUM
     Indication: Hypersensitivity
     Dosage: UNK, FOR FEW WEEKS
     Route: 065

REACTIONS (1)
  - Abnormal behaviour [Unknown]
